FAERS Safety Report 6458561-7 (Version None)
Quarter: 2009Q4

REPORT INFORMATION
  Report Type: 
  Country: None (occurrence: None)
  Receive Date: 20091126
  Receipt Date: 20091116
  Transmission Date: 20100525
  Serious: Yes (Life-Threatening, Hospitalization, Other)
  Sender: FDA-Public Use
  Company Number: US-BAXTER-2009BH017586

PATIENT
  Age: 29 Year
  Sex: Male

DRUGS (1)
  1. IMMUNE GLOBULIN INTRAVENOUS (HUMAN) [Suspect]
     Indication: BRUTON'S AGAMMAGLOBULINAEMIA
     Route: 042

REACTIONS (5)
  - DRUG INTOLERANCE [None]
  - GRANULOMA SKIN [None]
  - MUSCLE SPASMS [None]
  - NONSPECIFIC REACTION [None]
  - PULMONARY HAEMORRHAGE [None]
